FAERS Safety Report 23691465 (Version 1)
Quarter: 2024Q2

REPORT INFORMATION
  Report Type: Spontaneous
  Country: FR (occurrence: FR)
  Receive Date: 20240401
  Receipt Date: 20240401
  Transmission Date: 20240715
  Serious: Yes (Other)
  Sender: FDA-Public Use
  Company Number: FR-TEYRO-2024-TY-000085

PATIENT
  Sex: Female

DRUGS (8)
  1. TOPOTECAN [Suspect]
     Active Substance: TOPOTECAN HYDROCHLORIDE
     Indication: Neuroblastoma
     Dosage: 6 CYCLES, 0.75 MG/M2 PER DAY VIA INTRAVENOUS USE
     Route: 042
     Dates: start: 20210201
  2. TOPOTECAN [Suspect]
     Active Substance: TOPOTECAN HYDROCHLORIDE
     Indication: Metastases to soft tissue
     Dosage: UNK
     Route: 065
  3. TEMOZOLOMIDE [Suspect]
     Active Substance: TEMOZOLOMIDE
     Indication: Neuroblastoma
     Dosage: 6 CYCLES, 150 MG/M2 PER DAY PER ORAL USE
     Route: 048
     Dates: start: 20210201
  4. TEMOZOLOMIDE [Suspect]
     Active Substance: TEMOZOLOMIDE
     Indication: Metastases to soft tissue
     Dosage: UNK
     Route: 065
  5. DINUTUXIMAB BETA [Suspect]
     Active Substance: DINUTUXIMAB BETA
     Indication: Neuroblastoma
     Dosage: 6 CYCLES, 10 MG/M2 PER DAY VIA INTRAVENOUS USE
     Route: 042
     Dates: start: 20210201
  6. DINUTUXIMAB BETA [Suspect]
     Active Substance: DINUTUXIMAB BETA
     Indication: Bone cancer metastatic
     Dosage: UNK
     Route: 065
  7. DINUTUXIMAB BETA [Suspect]
     Active Substance: DINUTUXIMAB BETA
     Indication: Metastases to bone marrow
  8. DINUTUXIMAB BETA [Suspect]
     Active Substance: DINUTUXIMAB BETA
     Indication: Metastatic lymphoma

REACTIONS (2)
  - Therapy partial responder [Unknown]
  - Off label use [Unknown]
